FAERS Safety Report 4594804-2 (Version None)
Quarter: 2005Q1

REPORT INFORMATION
  Report Type: 
  Country: None (occurrence: None)
  Receive Date: 20050223
  Receipt Date: 20050207
  Transmission Date: 20050727
  Serious: No
  Sender: FDA-Public Use
  Company Number: DSA_25456_2004

PATIENT
  Age: 63 Year
  Sex: Male

DRUGS (1)
  1. TEVETEN [Suspect]
     Indication: HYPERTENSION
     Dosage: 600 MF Q DAY PO
     Route: 048
     Dates: start: 20031101, end: 20031205

REACTIONS (1)
  - URTICARIA [None]
